FAERS Safety Report 22087191 (Version 2)
Quarter: 2023Q1

REPORT INFORMATION
  Report Type: Other
  Country: JP (occurrence: JP)
  Receive Date: 20230313
  Receipt Date: 20230320
  Transmission Date: 20230418
  Serious: Yes (Hospitalization)
  Sender: FDA-Public Use
  Company Number: JP-ROCHE-3304862

PATIENT
  Age: 54 Year
  Sex: Female

DRUGS (1)
  1. GAZYVA [Suspect]
     Active Substance: OBINUTUZUMAB
     Indication: Follicular lymphoma
     Route: 065

REACTIONS (3)
  - Post-acute COVID-19 syndrome [Recovered/Resolved]
  - Pneumonia [Recovered/Resolved]
  - Hypogammaglobulinaemia [Unknown]
